FAERS Safety Report 10666109 (Version 2)
Quarter: 2014Q4

REPORT INFORMATION
  Report Type: Spontaneous
  Country: US (occurrence: US)
  Receive Date: 20141219
  Receipt Date: 20141223
  Transmission Date: 20150529
  Serious: Yes (Hospitalization, Other)
  Sender: FDA-Public Use
  Company Number: US-BAXTER-2014BAX074094

PATIENT
  Sex: Female

DRUGS (1)
  1. DIANEAL LOW CALCIUM PERITONEAL DIALYSIS SOLUTION WITH DEXTROSE [Suspect]
     Active Substance: CALCIUM CHLORIDE\DEXTROSE\MAGNESIUM CHLORIDE\SODIUM CHLORIDE\SODIUM LACTATE
     Indication: CHRONIC KIDNEY DISEASE
     Route: 033
     Dates: start: 201411, end: 201411

REACTIONS (7)
  - Hernia [Recovering/Resolving]
  - Blindness [Unknown]
  - Brain oedema [Recovering/Resolving]
  - Cough [Unknown]
  - Muscular weakness [Unknown]
  - Asthenia [Unknown]
  - Brain injury [Recovering/Resolving]

NARRATIVE: CASE EVENT DATE: 201411
